FAERS Safety Report 6964657-3 (Version None)
Quarter: 2010Q3

REPORT INFORMATION
  Report Type: 
  Country: None (occurrence: None)
  Receive Date: 20100903
  Receipt Date: 20100902
  Transmission Date: 20110219
  Serious: Yes (Hospitalization, Other)
  Sender: FDA-Public Use
  Company Number: US-ASTRAZENECA-2007UW18859

PATIENT
  Age: 13326 Day
  Sex: Female
  Weight: 68 kg

DRUGS (26)
  1. SEROQUEL [Suspect]
     Indication: DEPRESSION
     Dosage: 25MG - 200MG
     Route: 048
     Dates: start: 20030207, end: 20060319
  2. SEROQUEL [Suspect]
     Indication: INSOMNIA
     Dosage: 25MG - 200MG
     Route: 048
     Dates: start: 20030207, end: 20060319
  3. SEROQUEL [Suspect]
     Indication: SLEEP DISORDER
     Dosage: 25MG - 200MG
     Route: 048
     Dates: start: 20030207, end: 20060319
  4. SPIRONOLACTONE [Concomitant]
  5. ESTRATEST [Concomitant]
  6. PROTONIX [Concomitant]
  7. PROZAC [Concomitant]
  8. COZAAR [Concomitant]
  9. TRAZODONE HCL [Concomitant]
  10. ATENOLOL [Concomitant]
  11. ZITHROMAX [Concomitant]
  12. LEXPRO [Concomitant]
  13. RHINOCORT [Concomitant]
  14. PROCARDIA [Concomitant]
  15. LISINOPRIL [Concomitant]
  16. COLACE [Concomitant]
  17. METRONIDAZOLE [Concomitant]
  18. CLINDAMYCIN [Concomitant]
  19. GLYBURIDE [Concomitant]
  20. GLIPIZIDE [Concomitant]
  21. FLONASE [Concomitant]
  22. ULTRAM [Concomitant]
  23. HUMALOG MIX [Concomitant]
  24. NOVOLOG MIX 70/30 [Concomitant]
  25. ACYCLOVIR SODIUM [Concomitant]
  26. TERAZOL 1 [Concomitant]

REACTIONS (15)
  - ANAEMIA [None]
  - BACK PAIN [None]
  - DIABETES MELLITUS [None]
  - DRUG ABUSE [None]
  - FIBROMYALGIA [None]
  - GASTROOESOPHAGEAL REFLUX DISEASE [None]
  - HEADACHE [None]
  - HYPOGLYCAEMIA [None]
  - NEUROPATHY PERIPHERAL [None]
  - PANCREATITIS [None]
  - POST-TRAUMATIC STRESS DISORDER [None]
  - TREMOR [None]
  - TYPE 2 DIABETES MELLITUS [None]
  - VAGINITIS BACTERIAL [None]
  - VULVOVAGINAL DRYNESS [None]
